FAERS Safety Report 6173532-6 (Version None)
Quarter: 2009Q2

REPORT INFORMATION
  Report Type: 
  Country: None (occurrence: None)
  Receive Date: 20090430
  Receipt Date: 20090421
  Transmission Date: 20091009
  Serious: Yes (Hospitalization, Other)
  Sender: FDA-Public Use
  Company Number: B0562384A

PATIENT
  Sex: Male

DRUGS (4)
  1. ARIXTRA [Suspect]
     Indication: THROMBOSIS PROPHYLAXIS
     Dosage: 2.5MG PER DAY
     Route: 058
     Dates: start: 20090205, end: 20090211
  2. CHINESE MEDICINE [Concomitant]
     Dosage: 9G PER DAY
     Route: 048
     Dates: start: 20090205
  3. URSO 250 [Concomitant]
     Dosage: 300MG PER DAY
     Route: 048
     Dates: start: 20090205
  4. MIYA BM [Concomitant]
     Dosage: 3G PER DAY
     Route: 048
     Dates: start: 20090205

REACTIONS (1)
  - PORTAL VEIN THROMBOSIS [None]
